FAERS Safety Report 12558313 (Version 7)
Quarter: 2016Q4

REPORT INFORMATION
  Report Type: Report from Study
  Country: None (occurrence: NL)
  Receive Date: 20160714
  Receipt Date: 20161101
  Transmission Date: 20170207
  Serious: Yes (Hospitalization)
  Sender: FDA-Public Use
  Company Number: NL-ABBVIE-16K-114-1668069-00

PATIENT
  Age: 80 Year
  Sex: Female
  Weight: 64 kg

DRUGS (1)
  1. DUODOPA [Suspect]
     Active Substance: CARBIDOPA\LEVODOPA
     Indication: PARKINSON^S DISEASE
     Dosage: MD: 8.0, CD: 2.4, ED: 2.0
     Route: 050
     Dates: start: 20160621

REACTIONS (22)
  - Stoma site odour [Recovered/Resolved]
  - Vomiting [Recovered/Resolved]
  - Stoma site erythema [Recovered/Resolved]
  - C-reactive protein increased [Not Recovered/Not Resolved]
  - Restless legs syndrome [Not Recovered/Not Resolved]
  - Pain in extremity [Not Recovered/Not Resolved]
  - Stoma site discharge [Recovered/Resolved]
  - Hypophagia [Recovering/Resolving]
  - Underdose [Not Recovered/Not Resolved]
  - Dyskinesia [Recovering/Resolving]
  - Sluggishness [Not Recovered/Not Resolved]
  - Fibroma [Recovered/Resolved]
  - Gait disturbance [Not Recovered/Not Resolved]
  - Off label use [Unknown]
  - Gait disturbance [Unknown]
  - Drug effect decreased [Not Recovered/Not Resolved]
  - Stoma site extravasation [Recovered/Resolved]
  - Stoma site pain [Recovered/Resolved]
  - Mobility decreased [Not Recovered/Not Resolved]
  - Motor dysfunction [Not Recovered/Not Resolved]
  - Fatigue [Not Recovered/Not Resolved]
  - Fibroma [Not Recovered/Not Resolved]

NARRATIVE: CASE EVENT DATE: 2016
